FAERS Safety Report 14681208 (Version 4)
Quarter: 2018Q2

REPORT INFORMATION
  Report Type: Spontaneous
  Country: CZ (occurrence: CZ)
  Receive Date: 20180326
  Receipt Date: 20180517
  Transmission Date: 20180711
  Serious: Yes (Other)
  Sender: FDA-Public Use
  Company Number: CZ-TEVA-2018-CZ-870827

PATIENT
  Age: 28 Year
  Sex: Female

DRUGS (5)
  1. VALPROIC ACID. [Suspect]
     Active Substance: VALPROIC ACID
     Indication: EPILEPSY
     Dosage: 1500 MILLIGRAM DAILY;
     Route: 048
     Dates: start: 2007, end: 2008
  2. LAMOTRIGINE. [Suspect]
     Active Substance: LAMOTRIGINE
     Indication: EPILEPSY
     Dosage: 300 MILLIGRAM DAILY;
     Route: 048
     Dates: start: 2008
  3. LEVETIRACETAM. [Suspect]
     Active Substance: LEVETIRACETAM
     Indication: EPILEPSY
     Dosage: 1000 MILLIGRAM DAILY;
     Route: 048
     Dates: start: 2015, end: 2015
  4. VALPROIC ACID. [Suspect]
     Active Substance: VALPROIC ACID
     Dosage: 2000 MILLIGRAM DAILY;
     Route: 048
     Dates: start: 2008
  5. VALPROIC ACID. [Suspect]
     Active Substance: VALPROIC ACID
     Dosage: 500 MILLIGRAM DAILY;
     Route: 048
     Dates: start: 2015

REACTIONS (14)
  - Drug effect incomplete [Unknown]
  - Joint dislocation [Unknown]
  - Weight increased [Recovered/Resolved]
  - Tremor [Recovered/Resolved]
  - Aspartate aminotransferase increased [Recovered/Resolved]
  - Depression [Recovered/Resolved]
  - Clavicle fracture [Unknown]
  - Injury [Unknown]
  - Anxiety [Recovered/Resolved]
  - Alanine aminotransferase increased [Recovered/Resolved]
  - Headache [Recovered/Resolved]
  - Lipids [Recovered/Resolved]
  - Generalised tonic-clonic seizure [Unknown]
  - Gamma-glutamyltransferase increased [Recovered/Resolved]
